FAERS Safety Report 19153979 (Version 1)
Quarter: 2021Q2

REPORT INFORMATION
  Report Type: Spontaneous
  Country: CA (occurrence: CA)
  Receive Date: 20210419
  Receipt Date: 20210419
  Transmission Date: 20210717
  Serious: Yes (Hospitalization)
  Sender: FDA-Public Use
  Company Number: CA-TEVA-2021-CA-1901462

PATIENT
  Age: 52 Year
  Sex: Female

DRUGS (24)
  1. BETACAROTENE/DALPHATOCOPHEROL/LYCOPENE/POLYPODIUM/LEUCOTOMOS/XAN. [Concomitant]
  2. T?20 [Concomitant]
     Active Substance: ENFUVIRTIDE
  3. PROCYCLIDINE HCL [Suspect]
     Active Substance: PROCYCLIDINE HYDROCHLORIDE
     Indication: MUSCULOSKELETAL STIFFNESS
     Dosage: 2.5 MILLIGRAM DAILY;
     Route: 048
  4. LITHIUM. [Concomitant]
     Active Substance: LITHIUM
  5. QUETIAPINE. [Suspect]
     Active Substance: QUETIAPINE
     Indication: PSYCHOTIC DISORDER
     Dosage: 50 MILLIGRAM DAILY;
     Route: 048
  6. DIAZEPAM. [Suspect]
     Active Substance: DIAZEPAM
     Route: 065
  7. TEGRETOL [Suspect]
     Active Substance: CARBAMAZEPINE
     Indication: HYPOMANIA
     Dosage: 400 MILLIGRAM DAILY;
     Route: 048
  8. CLONAZEPAM. [Suspect]
     Active Substance: CLONAZEPAM
     Indication: HYPOMANIA
     Route: 048
  9. OLANZAPINE. [Suspect]
     Active Substance: OLANZAPINE
     Indication: PSYCHOTIC DISORDER
     Dosage: 5 MILLIGRAM DAILY;
     Route: 048
  10. LACTULOSE/MINERAL OIL [Concomitant]
  11. NYSTATIN. [Concomitant]
     Active Substance: NYSTATIN
  12. ACETAMINOPHEN. [Suspect]
     Active Substance: ACETAMINOPHEN
     Indication: PAIN IN EXTREMITY
     Route: 065
  13. OLANZAPINE. [Suspect]
     Active Substance: OLANZAPINE
     Dosage: 12.5 MILLIGRAM DAILY;
     Route: 048
  14. RISPERIDONE. [Suspect]
     Active Substance: RISPERIDONE
     Indication: PSYCHOTIC DISORDER
     Dosage: 3 MILLIGRAM DAILY;
     Route: 048
  15. TRAZODONE [Suspect]
     Active Substance: TRAZODONE HYDROCHLORIDE
     Indication: DEPRESSION
     Route: 048
  16. DIAZEPAM. [Suspect]
     Active Substance: DIAZEPAM
     Indication: DEPRESSION
     Dosage: 1500 MILLIGRAM DAILY;
     Route: 048
  17. PROCYCLIDINE HCL [Suspect]
     Active Substance: PROCYCLIDINE HYDROCHLORIDE
     Indication: PROPHYLAXIS
     Dosage: 2.5 MILLIGRAM DAILY;
     Route: 048
  18. CALCIUM CARBONATE. [Concomitant]
     Active Substance: CALCIUM CARBONATE
  19. IMODIUM [Concomitant]
     Active Substance: LOPERAMIDE HYDROCHLORIDE
  20. KALETRA [Concomitant]
     Active Substance: LOPINAVIR\RITONAVIR
  21. SERTRALINE [Concomitant]
     Active Substance: SERTRALINE HYDROCHLORIDE
  22. DIAZEPAM. [Suspect]
     Active Substance: DIAZEPAM
     Dosage: 500 MILLIGRAM DAILY;
     Route: 048
  23. BISACODYL. [Concomitant]
     Active Substance: BISACODYL
  24. CHLORAL HYDRATE [Concomitant]
     Active Substance: CHLORAL HYDRATE

REACTIONS (12)
  - Blood bilirubin increased [Unknown]
  - Hepatic enzyme increased [Unknown]
  - Psychotic disorder [Unknown]
  - Hypomania [Unknown]
  - Vomiting [Unknown]
  - Cholelithiasis [Unknown]
  - Jaundice cholestatic [Unknown]
  - Nausea [Unknown]
  - Schizophrenia [Unknown]
  - Hepatotoxicity [Unknown]
  - Condition aggravated [Unknown]
  - Pneumonia [Unknown]
